FAERS Safety Report 15933133 (Version 3)
Quarter: 2019Q1

REPORT INFORMATION
  Report Type: Spontaneous
  Country: TW (occurrence: TW)
  Receive Date: 20190207
  Receipt Date: 20190318
  Transmission Date: 20190417
  Serious: Yes (Hospitalization, Other)
  Sender: FDA-Public Use
  Company Number: TW-PFIZER INC-2019014399

PATIENT
  Age: 62 Year
  Sex: Male

DRUGS (3)
  1. INLYTA [Suspect]
     Active Substance: AXITINIB
     Dosage: 3 DF, BID
     Route: 048
     Dates: start: 20190207, end: 20190224
  2. INLYTA [Suspect]
     Active Substance: AXITINIB
     Dosage: UNK
  3. INLYTA [Suspect]
     Active Substance: AXITINIB
     Indication: RENAL CELL CARCINOMA
     Dosage: 3 DF, BID
     Route: 048
     Dates: start: 20190109, end: 20190203

REACTIONS (12)
  - Respiratory disorder [Unknown]
  - Somnolence [Unknown]
  - Vomiting [Unknown]
  - Blood catecholamines increased [Unknown]
  - Rash [Unknown]
  - Altered state of consciousness [Not Recovered/Not Resolved]
  - Blood pressure increased [Not Recovered/Not Resolved]
  - Skin discomfort [Not Recovered/Not Resolved]
  - Acne [Unknown]
  - Pruritus generalised [Unknown]
  - Ammonia abnormal [Recovered/Resolved]
  - Nausea [Not Recovered/Not Resolved]

NARRATIVE: CASE EVENT DATE: 20190109
